FAERS Safety Report 13015812 (Version 3)
Quarter: 2017Q1

REPORT INFORMATION
  Report Type: Spontaneous
  Country: JP (occurrence: JP)
  Receive Date: 20161212
  Receipt Date: 20170217
  Transmission Date: 20170428
  Serious: Yes (Other)
  Sender: FDA-Public Use
  Company Number: JP-ROCHE-1864839

PATIENT

DRUGS (3)
  1. RIVOTRIL [Suspect]
     Active Substance: CLONAZEPAM
     Indication: PRODUCT USED FOR UNKNOWN INDICATION
     Dosage: DOSAGE IS UNCERTAIN.
     Route: 064
  2. LORAZEPAM. [Concomitant]
     Active Substance: LORAZEPAM
     Dosage: DOSAGE IS UNCERTAIN.
     Route: 064
  3. ALPRAZOLAM. [Concomitant]
     Active Substance: ALPRAZOLAM
     Dosage: DOSAGE IS UNCERTAIN.
     Route: 064

REACTIONS (2)
  - Nonreassuring foetal heart rate pattern [Unknown]
  - Foetal exposure during pregnancy [Unknown]
